FAERS Safety Report 5574336-5 (Version None)
Quarter: 2007Q4

REPORT INFORMATION
  Report Type: 
  Country: None (occurrence: None)
  Receive Date: 20071221
  Receipt Date: 20071210
  Transmission Date: 20080405
  Serious: Yes (Death, Hospitalization)
  Sender: FDA-Public Use
  Company Number: 2006US001499

PATIENT
  Age: 58 Year
  Sex: Male

DRUGS (13)
  1. PROGRAF [Suspect]
     Indication: LIVER TRANSPLANT
     Dosage: 1 MG, ORAL
     Route: 048
     Dates: start: 20051128, end: 20061024
  2. MYCOPHENOLATE MOFETIL [Suspect]
     Indication: PROPHYLAXIS AGAINST TRANSPLANT REJECTION
     Dosage: 1000 MG, ORAL; 500 MG, BID
     Route: 048
     Dates: start: 20051126
  3. COLACE (DOCUSATE SODIUM) [Concomitant]
  4. WELLBUTRIN (BURPROPION) [Concomitant]
  5. URSODIOL (URSODEOXYCHOLIC ACID) [Concomitant]
  6. PROZAC [Concomitant]
  7. MULTIVITAMIN [Concomitant]
  8. PEGASYS (RIBAVIRIN, PEGINTERFERON ALFA-2A) [Concomitant]
  9. TERAZOSIN HCL [Concomitant]
  10. LORCET (HYDROCODONE BITARTRATE) [Concomitant]
  11. NEXIUM [Concomitant]
  12. MIDODRINE HYDROCHLORIDE [Concomitant]
  13. AQUAMEPHYTON (PHYTOMENADIONE) [Concomitant]

REACTIONS (9)
  - ENTEROCOCCAL SEPSIS [None]
  - HAEMODIALYSIS [None]
  - HAEMORRHOIDS [None]
  - LIVER TRANSPLANT REJECTION [None]
  - LOWER GASTROINTESTINAL HAEMORRHAGE [None]
  - MENTAL STATUS CHANGES [None]
  - NO THERAPEUTIC RESPONSE [None]
  - RENAL FAILURE [None]
  - ULCER [None]
